FAERS Safety Report 16992859 (Version 1)
Quarter: 2019Q4

REPORT INFORMATION
  Report Type: Spontaneous
  Country: FR (occurrence: FR)
  Receive Date: 20191105
  Receipt Date: 20191105
  Transmission Date: 20200122
  Serious: Yes (Hospitalization)
  Sender: FDA-Public Use
  Company Number: FR-TEVA-2019-FR-1130534

PATIENT
  Age: 89 Year
  Sex: Female

DRUGS (8)
  1. MIANSERINE (CHLORHYDRATE DE) [Suspect]
     Active Substance: MIANSERIN HYDROCHLORIDE
     Indication: DEPRESSION
     Dosage: UNINFORMED
     Route: 048
  2. EXFORGE [Suspect]
     Active Substance: AMLODIPINE BESYLATE\VALSARTAN
     Indication: HYPERTENSION
     Dosage: UNINFORMED
     Route: 048
  3. INEXIUM [Suspect]
     Active Substance: ESOMEPRAZOLE
     Indication: PEPTIC ULCER
     Dosage: UNINFORMED
     Route: 048
  4. EUPRESSYL [Suspect]
     Active Substance: URAPIDIL
     Indication: HYPERTENSION
     Dosage: UNINFORMED
     Route: 048
  5. TEMESTA [LORAZEPAM] [Suspect]
     Active Substance: LORAZEPAM
     Indication: ANXIETY
     Dosage: UNINFORMED
     Route: 048
  6. SOTALOL (CHLORHYDRATE DE) [Suspect]
     Active Substance: SOTALOL
     Indication: ARRHYTHMIA
     Dosage: UNINFORMED
     Route: 048
  7. KARDEGIC [Suspect]
     Active Substance: ASPIRIN DL-LYSINE
     Indication: THROMBOSIS PROPHYLAXIS
     Dosage: UNINFORMED
     Route: 048
  8. DAFALGAN CODEINE [Suspect]
     Active Substance: ACETAMINOPHEN\CODEINE PHOSPHATE
     Indication: BACK PAIN
     Dosage: UNINFORMED
     Route: 048

REACTIONS (2)
  - Constipation [Recovering/Resolving]
  - Abdominal pain [Recovering/Resolving]

NARRATIVE: CASE EVENT DATE: 20191001
